FAERS Safety Report 11641822 (Version 1)
Quarter: 2015Q4

REPORT INFORMATION
  Report Type: Spontaneous
  Country: US (occurrence: US)
  Receive Date: 20151019
  Receipt Date: 20151019
  Transmission Date: 20160304
  Serious: Yes (Other)
  Sender: FDA-Public Use
  Company Number: US-ALLERGAN-1512359US

PATIENT
  Sex: Male

DRUGS (5)
  1. METOFORMIN [Concomitant]
     Indication: DIABETES MELLITUS
  2. BENAZEPRIL [Concomitant]
     Active Substance: BENAZEPRIL HYDROCHLORIDE
     Indication: HYPERTENSION
  3. FINASTERIDE. [Concomitant]
     Active Substance: FINASTERIDE
     Indication: HYPERTENSION
  4. LUMIGAN [Suspect]
     Active Substance: BIMATOPROST
     Indication: GLAUCOMA
     Dosage: 2 GTT, QHS
     Route: 047
  5. VITAMIN B12 [Concomitant]
     Active Substance: CYANOCOBALAMIN

REACTIONS (1)
  - Throat cancer [Recovered/Resolved]

NARRATIVE: CASE EVENT DATE: 2013
